FAERS Safety Report 15879610 (Version 1)
Quarter: 2019Q1

REPORT INFORMATION
  Report Type: Spontaneous
  Country: US (occurrence: US)
  Receive Date: 20190128
  Receipt Date: 20190128
  Transmission Date: 20190417
  Serious: No
  Sender: FDA-Public Use
  Company Number: US-ORPHAN EUROPE-2061815

PATIENT
  Age: 35 Year
  Sex: Male
  Weight: 78.01 kg

DRUGS (3)
  1. VIMPAT [Concomitant]
     Active Substance: LACOSAMIDE
  2. KEPPRA [Concomitant]
     Active Substance: LEVETIRACETAM
  3. CYSTADANE [Suspect]
     Active Substance: BETAINE
     Indication: HOMOCYSTINURIA
     Route: 048
     Dates: end: 2018

REACTIONS (1)
  - Urinary incontinence [Not Recovered/Not Resolved]
